FAERS Safety Report 11854872 (Version 1)
Quarter: 2015Q4

REPORT INFORMATION
  Report Type: Spontaneous
  Country: CH (occurrence: CH)
  Receive Date: 20151221
  Receipt Date: 20151221
  Transmission Date: 20160305
  Serious: Yes (Disabling, Other)
  Sender: FDA-Public Use
  Company Number: CH-ROCHE-1679442

PATIENT
  Age: 66 Year
  Sex: Female

DRUGS (16)
  1. ARTHROTEC [Concomitant]
     Active Substance: DICLOFENAC SODIUM\MISOPROSTOL
     Dosage: LAYERED TABLET
     Route: 048
  2. ACTIVELLE [Concomitant]
     Active Substance: ESTRADIOL\NORETHINDRONE ACETATE
     Route: 048
  3. PANTOZOL (SWITZERLAND) [Concomitant]
     Active Substance: PANTOPRAZOLE SODIUM
  4. ESOMEP (SWITZERLAND) [Concomitant]
     Active Substance: ESOMEPRAZOLE
     Route: 048
  5. LYRICA [Concomitant]
     Active Substance: PREGABALIN
     Route: 048
  6. SIMVASTATIN. [Concomitant]
     Active Substance: SIMVASTATIN
     Dosage: SIMVASTATIN HELVEPHARM
     Route: 048
  7. CLIMAVITA [Concomitant]
     Route: 048
  8. FERRO SANOL [Concomitant]
     Active Substance: FERROUS SULFATE\GLYCINE
     Route: 048
  9. ACLASTA [Suspect]
     Active Substance: ZOLEDRONIC ACID
     Indication: PRODUCT USED FOR UNKNOWN INDICATION
     Route: 041
     Dates: start: 201112, end: 201404
  10. DOXYCYCLINE HYCLATE. [Suspect]
     Active Substance: DOXYCYCLINE HYCLATE
     Indication: IMMUNOMODULATORY THERAPY
     Dosage: REPORTED AS DOXYCYCLIN AXAPHARM
     Route: 048
     Dates: start: 2011
  11. NASONEX [Concomitant]
     Active Substance: MOMETASONE FUROATE
     Dosage: REPORTED AS NASONEX DOSIER-NASENSPRAY?FORM:LIQUIDS, PSRAYS WITHOUT GAS
     Route: 045
  12. BONVIVA [Suspect]
     Active Substance: IBANDRONATE SODIUM
     Indication: PRODUCT USED FOR UNKNOWN INDICATION
     Route: 041
     Dates: start: 2010, end: 201112
  13. CHONDROITIN SULFATE SODIUM [Concomitant]
     Active Substance: CHONDROITIN SULFATE (CHICKEN)
     Dosage: REPORTED AS CONDROSULF 800 COMPRESSE
     Route: 048
  14. COLECALCIFEROL [Concomitant]
     Active Substance: CHOLECALCIFEROL
     Dosage: REPORTED AS VI-DE 3 TROPFLOESUNG
     Route: 048
  15. LYRICA [Concomitant]
     Active Substance: PREGABALIN
     Route: 048
  16. SERETIDE [Concomitant]
     Active Substance: FLUTICASONE FUROATE\SALMETEROL XINAFOATE
     Route: 055

REACTIONS (2)
  - Osteonecrosis of jaw [Not Recovered/Not Resolved]
  - Tooth injury [Not Recovered/Not Resolved]

NARRATIVE: CASE EVENT DATE: 201411
